FAERS Safety Report 23882884 (Version 1)
Quarter: 2024Q2

REPORT INFORMATION
  Report Type: Spontaneous
  Country: US (occurrence: US)
  Receive Date: 20240522
  Receipt Date: 20240522
  Transmission Date: 20240715
  Serious: No
  Sender: FDA-Public Use
  Company Number: US-SLATERUN-2024SRSPO00043

PATIENT
  Age: 43 Year
  Sex: Female
  Weight: 115 kg

DRUGS (3)
  1. BUPROPION HYDROCHLORIDE [Suspect]
     Active Substance: BUPROPION HYDROCHLORIDE
     Indication: Depression
     Dosage: TAKING THE MEDICATION FOR ABOUT 3-4 YEARS
     Route: 065
  2. FOCALIN [Concomitant]
     Active Substance: DEXMETHYLPHENIDATE HYDROCHLORIDE
     Indication: Product used for unknown indication
     Route: 065
  3. NEBULA [Concomitant]
     Indication: Product used for unknown indication
     Route: 065

REACTIONS (1)
  - Product residue present [Not Recovered/Not Resolved]

NARRATIVE: CASE EVENT DATE: 20240101
